FAERS Safety Report 6453298-2 (Version None)
Quarter: 2009Q4

REPORT INFORMATION
  Report Type: 
  Country: None (occurrence: None)
  Receive Date: 20091124
  Receipt Date: 20091118
  Transmission Date: 20100525
  Serious: Yes (Other)
  Sender: FDA-Public Use
  Company Number: CHPA2009BR22274

PATIENT
  Sex: Male
  Weight: 47.5 kg

DRUGS (4)
  1. BENEFIBER W/ WHEAT DEXTRIN (NCH) [Suspect]
     Indication: PROPHYLAXIS
     Dosage: UNK, PRN
     Dates: start: 20090101
  2. BENEFIBER W/ WHEAT DEXTRIN (NCH) [Suspect]
     Dosage: 1 TSP, Q12H
     Dates: start: 20091117
  3. LACTULOSE [Concomitant]
     Dosage: 30 ML, TID
  4. LACTULOSE [Concomitant]
     Dosage: 10 ML, TID

REACTIONS (3)
  - BOWEL MOVEMENT IRREGULARITY [None]
  - CONSTIPATION [None]
  - DEHYDRATION [None]
